FAERS Safety Report 4899976-8 (Version None)
Quarter: 2006Q1

REPORT INFORMATION
  Report Type: 
  Country: None (occurrence: None)
  Receive Date: 20060131
  Receipt Date: 20060119
  Transmission Date: 20060701
  Serious: Yes (Other)
  Sender: FDA-Public Use
  Company Number: 2006010204

PATIENT
  Sex: Male

DRUGS (1)
  1. VIAGRA [Suspect]
     Indication: ILL-DEFINED DISORDER
     Dosage: 50 MG

REACTIONS (6)
  - BLOOD CHOLESTEROL INCREASED [None]
  - COLON CANCER [None]
  - DRUG EFFECT DECREASED [None]
  - DYSURIA [None]
  - ERECTILE DYSFUNCTION [None]
  - HYPERTENSION [None]
